FAERS Safety Report 5599762-X (Version None)
Quarter: 2008Q1

REPORT INFORMATION
  Report Type: 
  Country: None (occurrence: None)
  Receive Date: 20080123
  Receipt Date: 20080116
  Transmission Date: 20080703
  Serious: Yes (Death)
  Sender: FDA-Public Use
  Company Number: NO-JNJFOC-20080103948

PATIENT
  Age: 69 Year
  Sex: Female

DRUGS (8)
  1. REMICADE [Suspect]
     Indication: RHEUMATOID ARTHRITIS
     Route: 042
  2. METHOTREXATE [Concomitant]
  3. FOLIC ACID [Concomitant]
  4. SELO ZOK [Concomitant]
  5. CALCIGRAN FORTE [Concomitant]
  6. LEVOTHYROXINE SODIUM [Concomitant]
  7. MOBIC [Concomitant]
  8. PREDNISOLONE [Concomitant]

REACTIONS (1)
  - CEREBRAL HAEMORRHAGE [None]
